FAERS Safety Report 16352150 (Version 20)
Quarter: 2020Q1

REPORT INFORMATION
  Report Type: Spontaneous
  Country: DE (occurrence: DE)
  Receive Date: 20190524
  Receipt Date: 20200226
  Transmission Date: 20200409
  Serious: Yes (Life-Threatening, Hospitalization, Other)
  Sender: FDA-Public Use
  Company Number: DE-AUROBINDO-AUR-APL-2019-029026

PATIENT
  Sex: Female
  Weight: 88.6 kg

DRUGS (8)
  1. KISQALI [Suspect]
     Active Substance: RIBOCICLIB
     Dosage: 400 MILLIGRAM, ONCE A DAY (21 DAYS INTAKE, 7 DAYS PAUSE)
     Route: 048
     Dates: start: 20190521, end: 20190605
  2. PARACODIN [Concomitant]
     Indication: THORACIC CAVITY DRAINAGE
     Dosage: 1 DOSAGE FORM
     Route: 065
     Dates: start: 20190821, end: 20190821
  3. KISQALI [Suspect]
     Active Substance: RIBOCICLIB
     Dosage: 400 MILLIGRAM, ONCE A DAY (21 DAYS INTAKE, 7 DAYS PAUSE)
     Route: 048
     Dates: start: 20190624, end: 20190716
  4. AVASTIN [Concomitant]
     Active Substance: BEVACIZUMAB
     Indication: THORACIC CAVITY DRAINAGE
     Dosage: 1 DOSAGE FORM
     Route: 065
     Dates: start: 20190821, end: 20190821
  5. KISQALI [Suspect]
     Active Substance: RIBOCICLIB
     Indication: BREAST CANCER METASTATIC
     Dosage: 600 MILLIGRAM, ONCE A DAY (21 DAYS INTAKE, 7 DAYS PAUSE)
     Route: 048
     Dates: start: 20190415, end: 20190512
  6. IBUPROFEN. [Concomitant]
     Active Substance: IBUPROFEN
     Indication: THORACIC CAVITY DRAINAGE
     Dosage: 800 MG, PRN
     Route: 065
     Dates: start: 20190821, end: 20190821
  7. LETROZOLE. [Suspect]
     Active Substance: LETROZOLE
     Indication: BREAST CANCER METASTATIC
     Dosage: 2.5 MILLIGRAM, ONCE A DAY
     Route: 048
     Dates: start: 20190415, end: 20190729
  8. CLEXANE [Concomitant]
     Active Substance: ENOXAPARIN SODIUM
     Indication: THROMBOSIS PROPHYLAXIS
     Dosage: 4000 INTERNATIONAL UNIT, ONCE A DAY
     Route: 058
     Dates: start: 20190415, end: 20190424

REACTIONS (14)
  - Thrombocytopenia [Recovered/Resolved]
  - Pleural effusion [Not Recovered/Not Resolved]
  - Rotavirus infection [Recovered/Resolved]
  - General physical health deterioration [Not Recovered/Not Resolved]
  - Neutropenia [Recovered/Resolved]
  - Diarrhoea [Recovered/Resolved]
  - Pneumothorax [Recovered/Resolved]
  - Lymphoedema [Not Recovered/Not Resolved]
  - Lymphopenia [Recovered/Resolved]
  - Leukopenia [Recovered/Resolved]
  - Vitamin D deficiency [Not Recovered/Not Resolved]
  - Carbohydrate antigen 15-3 increased [Not Recovered/Not Resolved]
  - Dyspnoea [Not Recovered/Not Resolved]
  - Nausea [Not Recovered/Not Resolved]

NARRATIVE: CASE EVENT DATE: 20190429
